FAERS Safety Report 19882473 (Version 1)
Quarter: 2021Q3

REPORT INFORMATION
  Report Type: Spontaneous
  Country: CA (occurrence: CA)
  Receive Date: 20210924
  Receipt Date: 20210924
  Transmission Date: 20211014
  Serious: Yes (Disabling)
  Sender: FDA-Public Use
  Company Number: CA-ANIPHARMA-2021-CA-001431

PATIENT
  Age: 72 Year
  Sex: Female
  Weight: 84 kg

DRUGS (1)
  1. CANDESARTAN CILEXETIL. [Suspect]
     Active Substance: CANDESARTAN CILEXETIL
     Indication: PRODUCT USED FOR UNKNOWN INDICATION
     Dosage: 16 MG QD
     Route: 048

REACTIONS (4)
  - Gastrointestinal pain [Recovered/Resolved]
  - Diarrhoea [Recovered/Resolved]
  - Tinnitus [Recovered/Resolved]
  - Abdominal discomfort [Recovered/Resolved]
